FAERS Safety Report 17687415 (Version 2)
Quarter: 2020Q2

REPORT INFORMATION
  Report Type: Spontaneous
  Country: US (occurrence: US)
  Receive Date: 20200421
  Receipt Date: 20200522
  Transmission Date: 20200714
  Serious: Yes (Other)
  Sender: FDA-Public Use
  Company Number: US-HORIZON-PRE-0122-2020

PATIENT
  Age: 62 Year
  Sex: Female

DRUGS (1)
  1. RAYOS [Suspect]
     Active Substance: PREDNISONE
     Indication: RHEUMATOID ARTHRITIS
     Dosage: 2MG ONCE DAILY THEN INCREASED TO 5MG
     Dates: start: 2017

REACTIONS (2)
  - Rheumatoid arthritis [Unknown]
  - Polymyalgia rheumatica [Not Recovered/Not Resolved]
